FAERS Safety Report 4665419-2 (Version None)
Quarter: 2005Q2

REPORT INFORMATION
  Report Type: 
  Country: None (occurrence: None)
  Receive Date: 20050518
  Receipt Date: 20050518
  Transmission Date: 20051028
  Serious: Yes (Hospitalization, Disabling)
  Sender: FDA-Public Use
  Company Number: None

PATIENT
  Sex: Female
  Weight: 86.1834 kg

DRUGS (1)
  1. PAXIL [Suspect]
     Indication: MAJOR DEPRESSION
     Dosage: ONCE   DAILY   ORAL
     Route: 048
     Dates: start: 19980301, end: 20050516

REACTIONS (29)
  - ABNORMAL BEHAVIOUR [None]
  - AMNESIA [None]
  - BACK PAIN [None]
  - BIPOLAR DISORDER [None]
  - CRYING [None]
  - DEPRESSION [None]
  - DISORIENTATION [None]
  - DISTURBANCE IN ATTENTION [None]
  - DRUG EFFECT DECREASED [None]
  - DRUG WITHDRAWAL SYNDROME [None]
  - DYSKINESIA [None]
  - DYSTHYMIC DISORDER [None]
  - ECONOMIC PROBLEM [None]
  - FEELING ABNORMAL [None]
  - HAEMATOCHEZIA [None]
  - HALLUCINATION, VISUAL [None]
  - HYPERACUSIS [None]
  - HYPOMANIA [None]
  - IRRITABILITY [None]
  - MALAISE [None]
  - MARITAL PROBLEM [None]
  - MOANING [None]
  - MOOD SWINGS [None]
  - MUSCLE TWITCHING [None]
  - NIGHTMARE [None]
  - PHOTOPHOBIA [None]
  - POST-TRAUMATIC STRESS DISORDER [None]
  - SPEECH DISORDER [None]
  - TINNITUS [None]
